FAERS Safety Report 6003161-6 (Version None)
Quarter: 2008Q4

REPORT INFORMATION
  Report Type: 
  Country: None (occurrence: None)
  Receive Date: 20081216
  Receipt Date: 20081204
  Transmission Date: 20090506
  Serious: Yes (Disabling, Other)
  Sender: FDA-Public Use
  Company Number: US-JNJFOC-20081201959

PATIENT
  Sex: Female

DRUGS (2)
  1. FENTANYL TRANSDERMAL SYSTEM [Suspect]
     Route: 062
  2. FENTANYL TRANSDERMAL SYSTEM [Suspect]
     Indication: PAIN
     Route: 062

REACTIONS (11)
  - ACTIVITIES OF DAILY LIVING IMPAIRED [None]
  - AMNESIA [None]
  - ANHEDONIA [None]
  - BLOOD DISORDER [None]
  - BODY TEMPERATURE FLUCTUATION [None]
  - DECREASED IMMUNE RESPONSIVENESS [None]
  - FAILURE TO THRIVE [None]
  - INSOMNIA [None]
  - OXYGEN SUPPLEMENTATION [None]
  - PNEUMONIA VIRAL [None]
  - VOMITING [None]
